FAERS Safety Report 11895153 (Version 2)
Quarter: 2016Q2

REPORT INFORMATION
  Report Type: Spontaneous
  Country: US (occurrence: US)
  Receive Date: 20160107
  Receipt Date: 20160418
  Transmission Date: 20160815
  Serious: No
  Sender: FDA-Public Use
  Company Number: US-PFIZER INC-2015442739

PATIENT
  Age: 75 Year
  Sex: Female

DRUGS (9)
  1. IBRANCE [Suspect]
     Active Substance: PALBOCICLIB
     Dosage: 75 MG, DAILY
     Route: 048
     Dates: start: 20150930
  2. HYDROCHLOROTHIAZIDE. [Concomitant]
     Active Substance: HYDROCHLOROTHIAZIDE
  3. IBRANCE [Suspect]
     Active Substance: PALBOCICLIB
     Indication: BREAST CANCER FEMALE
     Dosage: 100 MG, CYCLIC (1 CAP DAILY FOR 3 WEEKS AND 1 WEEKS OFF)
     Dates: start: 20150210
  4. ATENOLOL. [Concomitant]
     Active Substance: ATENOLOL
  5. GLIPIZIDE. [Concomitant]
     Active Substance: GLIPIZIDE
  6. LOSARTAN POTASSIUM. [Concomitant]
     Active Substance: LOSARTAN POTASSIUM
  7. LISINOPRIL. [Concomitant]
     Active Substance: LISINOPRIL
  8. LORAZEPAM. [Concomitant]
     Active Substance: LORAZEPAM
  9. METFORMIN HCL [Concomitant]
     Active Substance: METFORMIN HYDROCHLORIDE

REACTIONS (2)
  - Blood count abnormal [Unknown]
  - Product use issue [Unknown]
